FAERS Safety Report 6053689-8 (Version None)
Quarter: 2009Q1

REPORT INFORMATION
  Report Type: 
  Country: None (occurrence: None)
  Receive Date: 20090127
  Receipt Date: 20080321
  Transmission Date: 20090719
  Serious: No
  Sender: FDA-Public Use
  Company Number: US-TEVA-169153USA

PATIENT
  Sex: Male
  Weight: 12.712 kg

DRUGS (4)
  1. COPAXONE [Suspect]
     Indication: DEMYELINATING POLYNEUROPATHY
     Dosage: 2.5 MG EVERY OTHER DAY
     Route: 058
     Dates: start: 20070501, end: 20070901
  2. RITUXIMAB [Concomitant]
     Dates: start: 20080229, end: 20080313
  3. METHYLPREDNISOLONE [Concomitant]
     Dosage: 160 MG/WEEK
     Route: 042
  4. IMMUNE GLOBULIN INTRAVENOUS (HUMAN) [Concomitant]
     Dosage: 10 GRAMS EVERY 3 WEEKS

REACTIONS (2)
  - CD4 LYMPHOCYTES DECREASED [None]
  - OFF LABEL USE [None]
